FAERS Safety Report 25407877 (Version 1)
Quarter: 2025Q2

REPORT INFORMATION
  Report Type: Spontaneous
  Country: US (occurrence: US)
  Receive Date: 20250606
  Receipt Date: 20250606
  Transmission Date: 20250716
  Serious: No
  Sender: PFIZER
  Company Number: US-PFIZER INC-PV202500066756

PATIENT
  Sex: Male

DRUGS (2)
  1. LORBRENA [Interacting]
     Active Substance: LORLATINIB
     Indication: Non-small cell lung cancer metastatic
  2. RITALIN [Interacting]
     Active Substance: METHYLPHENIDATE HYDROCHLORIDE

REACTIONS (2)
  - Drug interaction [Unknown]
  - Mania [Unknown]

NARRATIVE: CASE EVENT DATE: 20240101
